FAERS Safety Report 5881287-5 (Version None)
Quarter: 2008Q3

REPORT INFORMATION
  Report Type: 
  Country: None (occurrence: None)
  Receive Date: 20080911
  Receipt Date: 20080903
  Transmission Date: 20090109
  Serious: Yes (Hospitalization)
  Sender: FDA-Public Use
  Company Number: 2008002153

PATIENT
  Age: 46 Year
  Sex: Male

DRUGS (14)
  1. TARCEVA [Suspect]
     Indication: MALIGNANT OLIGODENDROGLIOMA
     Dosage: (150 MG, QD), ORAL
     Route: 048
     Dates: start: 20080817, end: 20080827
  2. BEVACIZUMAB (INJECTION FOR INFUSION) [Suspect]
     Indication: MALIGNANT OLIGODENDROGLIOMA
     Dosage: (Q2W), INTRAVENOUS
     Route: 042
     Dates: start: 20080617
  3. DIOVAN [Concomitant]
  4. IRINOTECAN HCL [Concomitant]
  5. TRILEPTAL [Concomitant]
  6. KEPPRA [Concomitant]
  7. DECADRON [Concomitant]
  8. PEPCID [Concomitant]
  9. PROCHLORPERAZINE (PROCHLOPERAZINE) [Concomitant]
  10. BACTRIM [Concomitant]
  11. TOPAMAX [Concomitant]
  12. ALOXI [Concomitant]
  13. OXYCONTIN [Concomitant]
  14. OXYCODONE HCL [Concomitant]

REACTIONS (6)
  - ASTHENIA [None]
  - CONDITION AGGRAVATED [None]
  - FALL [None]
  - GAIT DISTURBANCE [None]
  - HEADACHE [None]
  - HYPOTENSION [None]
